FAERS Safety Report 6478038-2 (Version None)
Quarter: 2009Q4

REPORT INFORMATION
  Report Type: 
  Country: None (occurrence: None)
  Receive Date: 20091207
  Receipt Date: 20091202
  Transmission Date: 20100525
  Serious: Yes (Other)
  Sender: FDA-Public Use
  Company Number: US-JNJCH-2009031296

PATIENT
  Age: 47 Year
  Sex: Female

DRUGS (1)
  1. NEOSPORIN [Suspect]
     Indication: ARTHROPOD BITE
     Dosage: TEXT:UNSPECIFIED
     Route: 061

REACTIONS (3)
  - EXPIRED DRUG ADMINISTERED [None]
  - INFECTION [None]
  - PYREXIA [None]
